FAERS Safety Report 10189836 (Version 1)
Quarter: 2014Q2

REPORT INFORMATION
  Report Type: Spontaneous
  Country: US (occurrence: US)
  Receive Date: 20140522
  Receipt Date: 20140522
  Transmission Date: 20141212
  Serious: Yes (Hospitalization)
  Sender: FDA-Public Use
  Company Number: US-SA-2013SA129350

PATIENT
  Age: 75 Year
  Sex: Male

DRUGS (2)
  1. LANTUS SOLOSTAR [Suspect]
     Indication: TYPE 2 DIABETES MELLITUS
     Dosage: MORNING AND NIGHT. DOSE:45 UNIT(S)
     Route: 058
  2. SOLOSTAR [Concomitant]

REACTIONS (2)
  - Hyperglycaemia [Not Recovered/Not Resolved]
  - Drug dose omission [Unknown]
